FAERS Safety Report 8801784 (Version 2)
Quarter: 2012Q4

REPORT INFORMATION
  Report Type: 
  Country: US (occurrence: US)
  Receive Date: 20120921
  Receipt Date: 20121008
  Transmission Date: 20130627
  Serious: No
  Sender: FDA-Public Use
  Company Number: US-PFIZER INC-2012229914

PATIENT
  Sex: Female

DRUGS (1)
  1. PROCARDIA XL [Suspect]
     Indication: BLOOD PRESSURE
     Dosage: 60 mg, 1x/day

REACTIONS (1)
  - Drug ineffective [Unknown]
